FAERS Safety Report 18898411 (Version 1)
Quarter: 2021Q1

REPORT INFORMATION
  Report Type: Spontaneous
  Country: CA (occurrence: CA)
  Receive Date: 20210216
  Receipt Date: 20210216
  Transmission Date: 20210420
  Serious: Yes (Death, Life-Threatening)
  Sender: FDA-Public Use
  Company Number: CA-CHEPLA-C20210767

PATIENT
  Age: 40 Day
  Sex: Male
  Weight: 1 kg

DRUGS (32)
  1. AMPICILLIN [Concomitant]
     Active Substance: AMPICILLIN
  2. GENTAMICIN. [Concomitant]
     Active Substance: GENTAMICIN
  3. LINEZOLID. [Concomitant]
     Active Substance: LINEZOLID
  4. MORPHINE [Concomitant]
     Active Substance: MORPHINE
  5. NOREPINEPHRINE. [Concomitant]
     Active Substance: NOREPINEPHRINE
  6. PIPERACILLIN/TAZOBACTAM [Concomitant]
     Active Substance: PIPERACILLIN SODIUM\TAZOBACTAM SODIUM
  7. SILDENAFIL. [Concomitant]
     Active Substance: SILDENAFIL
  8. VALGANCICLOVIR. [Concomitant]
     Active Substance: VALGANCICLOVIR
  9. EUCERIN [Concomitant]
     Active Substance: ENSULIZOLE\EUCERIN\OCTINOXATE\OCTISALATE\TITANIUM DIOXIDE\ZINC OXIDE
  10. HYDROCORTISONE. [Concomitant]
     Active Substance: HYDROCORTISONE
  11. SUCROSE [Concomitant]
     Active Substance: SUCROSE
  12. CAFFEINE. [Concomitant]
     Active Substance: CAFFEINE
  13. CLONIDINE. [Concomitant]
     Active Substance: CLONIDINE
  14. HEPARIN SODIUM. [Concomitant]
     Active Substance: HEPARIN SODIUM
  15. GANCICLOVIR. [Suspect]
     Active Substance: GANCICLOVIR
     Indication: CYTOMEGALOVIRUS INFECTION
     Dosage: 5 MG, 1 EVERY 12 HOURS
  16. CHOLECALCIFEROL [Concomitant]
     Active Substance: CHOLECALCIFEROL
  17. DEXAMETHASONE. [Concomitant]
     Active Substance: DEXAMETHASONE
  18. DOPAMINE HCL [Concomitant]
     Active Substance: DOPAMINE HYDROCHLORIDE
  19. INSULIN [Concomitant]
     Active Substance: INSULIN NOS
  20. IRON [Concomitant]
     Active Substance: IRON
  21. LORAZEPAM. [Concomitant]
     Active Substance: LORAZEPAM
  22. ROCURONIUM [Concomitant]
     Active Substance: ROCURONIUM BROMIDE
  23. CLOXACILLIN [Concomitant]
     Active Substance: CLOXACILLIN
  24. CYCLOPENTOLATE HYDROCHLORIDE. [Concomitant]
     Active Substance: CYCLOPENTOLATE HYDROCHLORIDE
  25. HYDROCHLOROTHIAZIDE. [Concomitant]
     Active Substance: HYDROCHLOROTHIAZIDE
  26. SPIRONOLACTONE. [Concomitant]
     Active Substance: SPIRONOLACTONE
  27. FUROSEMIDE. [Concomitant]
     Active Substance: FUROSEMIDE
  28. CEFOTAXIME [Concomitant]
     Active Substance: CEFOTAXIME SODIUM
  29. SODIUM [Concomitant]
     Active Substance: SODIUM
  30. DEXMEDETOMIDINE. [Concomitant]
     Active Substance: DEXMEDETOMIDINE
  31. FLUCONAZOLE. [Concomitant]
     Active Substance: FLUCONAZOLE
  32. VANCOMYCIN [Concomitant]
     Active Substance: VANCOMYCIN

REACTIONS (4)
  - General physical health deterioration [Fatal]
  - Product use issue [Unknown]
  - Respiratory failure [Fatal]
  - Neutropenia [Fatal]
